FAERS Safety Report 10170900 (Version 1)
Quarter: 2014Q2

REPORT INFORMATION
  Report Type: Spontaneous
  Country: US (occurrence: None)
  Receive Date: 20140513
  Receipt Date: 20140513
  Transmission Date: 20141212
  Serious: Yes (Hospitalization)
  Sender: FDA-Public Use
  Company Number: None

PATIENT
  Age: 53 Year
  Sex: Male
  Weight: 74.1 kg

DRUGS (2)
  1. CYTARABINE [Suspect]
     Dates: end: 20140421
  2. IDARUBICIN [Suspect]
     Dates: end: 20140417

REACTIONS (7)
  - Tongue haematoma [None]
  - Tongue biting [None]
  - Discomfort [None]
  - Swollen tongue [None]
  - Obstructive airways disorder [None]
  - Infection [None]
  - Inflammation [None]
